FAERS Safety Report 6219407-5 (Version None)
Quarter: 2009Q2

REPORT INFORMATION
  Report Type: 
  Country: None (occurrence: None)
  Receive Date: 20090603
  Receipt Date: 20090117
  Transmission Date: 20091009
  Serious: Yes (Disabling)
  Sender: FDA-Public Use
  Company Number: FACT0800186

PATIENT
  Age: 58 Year
  Sex: Female
  Weight: 73.9 kg

DRUGS (9)
  1. FACTIVE [Suspect]
     Indication: BRONCHITIS
     Dosage: 320 MG, QD, ORAL
     Route: 048
     Dates: start: 20081104, end: 20081101
  2. FACTIVE [Suspect]
     Indication: SINUSITIS
     Dosage: 320 MG, QD, ORAL
     Route: 048
     Dates: start: 20081104, end: 20081101
  3. SYNTHROID [Concomitant]
  4. LEXAPRO [Concomitant]
  5. ASPIRIN [Concomitant]
  6. GLUCOTROL XL [Concomitant]
  7. FENOFIBRATE [Concomitant]
  8. CELEBREX [Concomitant]
  9. DETROL LA [Concomitant]

REACTIONS (2)
  - TENDON RUPTURE [None]
  - TENDONITIS [None]
